FAERS Safety Report 5622339-4 (Version None)
Quarter: 2008Q1

REPORT INFORMATION
  Report Type: 
  Country: None (occurrence: None)
  Receive Date: 20080114
  Receipt Date: 20070712
  Transmission Date: 20080703
  Serious: Yes (Hospitalization)
  Sender: FDA-Public Use
  Company Number: A03200704614

PATIENT
  Age: 54 Year
  Sex: Male
  Weight: 63.5036 kg

DRUGS (4)
  1. PLAVIX [Suspect]
     Indication: STENT PLACEMENT
     Dosage: 75 MG QD - ORAL
     Route: 048
     Dates: start: 20070617, end: 20070701
  2. PLAVIX [Suspect]
     Indication: THROMBOSIS PROPHYLAXIS
     Dosage: 75 MG QD - ORAL
     Route: 048
     Dates: start: 20070617, end: 20070701
  3. ACETYLSALICYLIC ACID SRT [Concomitant]
  4. METOPROLOL TARTRATE [Concomitant]

REACTIONS (2)
  - ASTHENIA [None]
  - GASTRIC ULCER [None]
